FAERS Safety Report 4811709-X (Version None)
Quarter: 2005Q4

REPORT INFORMATION
  Report Type: 
  Country: None (occurrence: None)
  Receive Date: 20051025
  Receipt Date: 20051012
  Transmission Date: 20060501
  Serious: Yes (Hospitalization)
  Sender: FDA-Public Use
  Company Number: 2005141042

PATIENT
  Age: 46 Year
  Sex: Male

DRUGS (2)
  1. SOLU-MEDROL [Suspect]
     Indication: VISUAL FIELD DEFECT
     Dosage: 120 MG (40 MG, 3 IN 1 D), INTRAVENOUS
     Route: 042
     Dates: start: 20050823
  2. BROMOCRIPTINE MESYLATE [Suspect]
     Indication: PITUITARY TUMOUR BENIGN
     Dosage: 7.5 MG (2.5 MG, 3 IN 1 D), ORAL
     Route: 048
     Dates: start: 20050823

REACTIONS (3)
  - INTRACRANIAL HYPOTENSION [None]
  - OSTEOLYSIS [None]
  - RHINORRHOEA [None]
